FAERS Safety Report 9218172 (Version 3)
Quarter: 2013Q3

REPORT INFORMATION
  Report Type: Report from Study
  Country: US (occurrence: US)
  Receive Date: 20130408
  Receipt Date: 20130722
  Transmission Date: 20140515
  Serious: Yes (Hospitalization)
  Sender: FDA-Public Use
  Company Number: US-US-EMD SERONO, INC.-7203028

PATIENT
  Age: 35 Year
  Sex: Male

DRUGS (4)
  1. REBIF [Suspect]
     Indication: MULTIPLE SCLEROSIS
     Dates: start: 20130218
  2. REBIF [Suspect]
     Route: 058
  3. REBIF [Suspect]
     Dates: end: 20130316
  4. REBIF [Suspect]
     Route: 058
     Dates: start: 20130325

REACTIONS (11)
  - Multiple sclerosis relapse [Recovered/Resolved]
  - Faecal incontinence [Recovering/Resolving]
  - Nausea [Recovering/Resolving]
  - Anger [Unknown]
  - Vertigo [Recovering/Resolving]
  - Agitation [Recovered/Resolved]
  - Mood altered [Recovered/Resolved]
  - Urinary incontinence [Recovering/Resolving]
  - Vision blurred [Recovering/Resolving]
  - Influenza like illness [Recovering/Resolving]
  - Injection site pain [Not Recovered/Not Resolved]
